FAERS Safety Report 7067765-4 (Version None)
Quarter: 2010Q4

REPORT INFORMATION
  Report Type: 
  Country: None (occurrence: None)
  Receive Date: 20101028
  Receipt Date: 20091207
  Transmission Date: 20110411
  Serious: No
  Sender: FDA-Public Use
  Company Number: A0833895A

PATIENT
  Age: 75 Year
  Sex: Female

DRUGS (4)
  1. SEREVENT [Suspect]
     Indication: CHRONIC OBSTRUCTIVE PULMONARY DISEASE
     Dosage: 1PUFF TWICE PER DAY
     Route: 055
  2. ASMANEX TWISTHALER [Concomitant]
  3. SPIRIVA [Concomitant]
  4. INHALER [Concomitant]

REACTIONS (1)
  - AGEUSIA [None]
